FAERS Safety Report 24464283 (Version 1)
Quarter: 2024Q4

REPORT INFORMATION
  Report Type: Spontaneous
  Country: US (occurrence: US)
  Receive Date: 20241018
  Receipt Date: 20241018
  Transmission Date: 20250114
  Serious: No
  Sender: ROCHE
  Company Number: US-ROCHE-3490823

PATIENT
  Age: 14 Year
  Sex: Female
  Weight: 79.83 kg

DRUGS (1)
  1. XOLAIR [Suspect]
     Active Substance: OMALIZUMAB
     Indication: Chronic spontaneous urticaria
     Route: 058
     Dates: start: 20220909, end: 20231204

REACTIONS (1)
  - Thrombocytopenia [Not Recovered/Not Resolved]
